FAERS Safety Report 13622818 (Version 1)
Quarter: 2017Q2

REPORT INFORMATION
  Report Type: Report from Study
  Country: None (occurrence: US)
  Receive Date: 20170607
  Receipt Date: 20170607
  Transmission Date: 20170830
  Serious: Yes (Hospitalization, Other)
  Sender: FDA-Public Use
  Company Number: US-ABBVIE-17K-163-1996609-00

PATIENT
  Age: 66 Year
  Sex: Male
  Weight: 74.91 kg

DRUGS (2)
  1. HUMIRA [Suspect]
     Active Substance: ADALIMUMAB
     Indication: CROHN^S DISEASE
     Route: 058
     Dates: start: 201606, end: 201610
  2. HUMIRA [Suspect]
     Active Substance: ADALIMUMAB
     Route: 058
     Dates: start: 201611, end: 20170207

REACTIONS (7)
  - Renal failure [Recovered/Resolved]
  - Pulmonary oedema [Recovering/Resolving]
  - Hypotension [Recovered/Resolved]
  - Cardiac failure congestive [Recovering/Resolving]
  - Wheezing [Recovering/Resolving]
  - Gastrointestinal carcinoma [Recovered/Resolved]
  - Crohn^s disease [Recovered/Resolved]

NARRATIVE: CASE EVENT DATE: 201609
